FAERS Safety Report 15598471 (Version 2)
Quarter: 2019Q2

REPORT INFORMATION
  Report Type: Spontaneous
  Country: US (occurrence: US)
  Receive Date: 20181108
  Receipt Date: 20190603
  Transmission Date: 20190711
  Serious: Yes (Other)
  Sender: FDA-Public Use
  Company Number: US-SA-2017SA250934

PATIENT
  Age: 58 Year
  Sex: Female
  Weight: 117 kg

DRUGS (13)
  1. MOTRIN [Concomitant]
     Active Substance: IBUPROFEN
     Dosage: 600 MG, Q6H
     Route: 065
  2. TAXOTERE [Suspect]
     Active Substance: DOCETAXEL
     Dosage: UNK UNK, QW
     Route: 042
     Dates: start: 200505, end: 200505
  3. WARFARIN [Concomitant]
     Active Substance: WARFARIN
     Dosage: 7.5MG (3/20), 5MG (3/21)
     Route: 065
     Dates: start: 20110313
  4. VICODIN [Concomitant]
     Active Substance: ACETAMINOPHEN\HYDROCODONE BITARTRATE
     Indication: PAIN
     Dosage: EVERY 4 TO 6 HOUR
     Route: 048
  5. ATENOLOL. [Concomitant]
     Active Substance: ATENOLOL
     Dosage: 50 MG, QD
     Route: 048
  6. ACETAMINOPHEN AND CODEINE [Concomitant]
     Active Substance: ACETAMINOPHEN\CODEINE PHOSPHATE
     Dosage: 300-30MG, TAKE 1 TO 2 TABLET DAILY
     Route: 048
     Dates: start: 20110520
  7. NEOSAR [Concomitant]
     Active Substance: CYCLOPHOSPHAMIDE
     Indication: CHEMOTHERAPY
     Dosage: UNK UNK, UNK
     Route: 065
  8. TAXOTERE [Suspect]
     Active Substance: DOCETAXEL
     Indication: BREAST CANCER FEMALE
     Dosage: UNK, QW
     Route: 042
     Dates: start: 200404, end: 200404
  9. LOVENOX [Concomitant]
     Active Substance: ENOXAPARIN SODIUM
     Dosage: 120 MG, Q12H
     Route: 065
  10. PENICILLIN V POTASSIUM. [Concomitant]
     Active Substance: PENICILLIN V POTASSIUM
     Dosage: 1 DF, QID
     Route: 048
  11. ADRIAMYCIN [Concomitant]
     Active Substance: DOXORUBICIN HYDROCHLORIDE
     Dosage: UNK UNK, UNK
     Route: 065
  12. HERCEPTIN [Concomitant]
     Active Substance: TRASTUZUMAB
     Indication: CHEMOTHERAPY
     Dosage: UNK UNK, UNK
     Route: 065
  13. LISINOPRIL + HIDROCLOROTIAZIDA [Concomitant]
     Active Substance: HYDROCHLOROTHIAZIDE\LISINOPRIL
     Dosage: 20-12.5 MG

REACTIONS (1)
  - Alopecia [Recovering/Resolving]
